FAERS Safety Report 23249990 (Version 1)
Quarter: 2023Q4

REPORT INFORMATION
  Report Type: Spontaneous
  Country: FR (occurrence: FR)
  Receive Date: 20231201
  Receipt Date: 20231201
  Transmission Date: 20240109
  Serious: Yes (Hospitalization, Other)
  Sender: FDA-Public Use
  Company Number: FR-RECORDATI-2022006556

PATIENT
  Age: 51 Year
  Sex: Male
  Weight: 70 kg

DRUGS (10)
  1. OXYCODONE [Suspect]
     Active Substance: OXYCODONE
     Indication: Cancer pain
     Dosage: 144 MILLIGRAM, ONCE A DAY (144 MILLIGRAM, QD)
     Route: 042
     Dates: start: 20220809, end: 20220826
  2. OXYCODONE [Suspect]
     Active Substance: OXYCODONE
     Dosage: 70 MILLIGRAM, ONCE A DAY (70 MILLIGRAM, QD)
     Route: 042
     Dates: start: 20220826, end: 20220827
  3. OXYCODONE [Suspect]
     Active Substance: OXYCODONE
     Dosage: 35 MILLIGRAM, ONCE A DAY (35 MILLIGRAM, QD)
     Route: 042
     Dates: start: 20220827, end: 20220828
  4. METHADONE HYDROCHLORIDE [Suspect]
     Active Substance: METHADONE HYDROCHLORIDE
     Indication: Cancer pain
     Dosage: 30 MILLIGRAM, ONCE A DAY (30 MILLIGRAM, QD)
     Route: 048
     Dates: start: 20220826, end: 20220826
  5. METHADONE HYDROCHLORIDE [Suspect]
     Active Substance: METHADONE HYDROCHLORIDE
     Dosage: 60 MILLIGRAM, ONCE A DAY (60 MILLIGRAM, QD)
     Route: 048
     Dates: start: 20220827, end: 20220827
  6. METHADONE HYDROCHLORIDE [Suspect]
     Active Substance: METHADONE HYDROCHLORIDE
     Dosage: 75 MILLIGRAM, ONCE A DAY (75 MILLIGRAM, QD)
     Route: 048
     Dates: start: 20220828, end: 20220829
  7. METHADONE HYDROCHLORIDE [Suspect]
     Active Substance: METHADONE HYDROCHLORIDE
     Dosage: 120 MILLIGRAM, ONCE A DAY (120 MILLIGRAM, QD)
     Route: 048
     Dates: start: 20220830, end: 20220830
  8. ACUPAN [Concomitant]
     Active Substance: NEFOPAM HYDROCHLORIDE
     Indication: Cancer pain
     Dosage: UNK
     Route: 065
  9. CORTICOSTEROID NOS [Concomitant]
     Active Substance: CORTICOSTEROID NOS
     Indication: Cancer pain
  10. ACETAMINOPHEN [Concomitant]
     Active Substance: ACETAMINOPHEN
     Indication: Cancer pain
     Dosage: UNK
     Route: 065

REACTIONS (6)
  - Disease progression [Unknown]
  - Duodenal stenosis [Recovered/Resolved]
  - Vomiting [Recovered/Resolved]
  - Hot flush [Recovered/Resolved]
  - Nausea [Recovered/Resolved]
  - Hyperhidrosis [Recovered/Resolved]

NARRATIVE: CASE EVENT DATE: 20220827
